FAERS Safety Report 4868277-6 (Version None)
Quarter: 2005Q4

REPORT INFORMATION
  Report Type: 
  Country: None (occurrence: None)
  Receive Date: 20051229
  Receipt Date: 20051130
  Transmission Date: 20060501
  Serious: Yes (Other)
  Sender: FDA-Public Use
  Company Number: JP-MERCK-0512USA00587

PATIENT
  Age: 62 Year
  Sex: Female

DRUGS (6)
  1. LENDORMIN [Concomitant]
     Route: 048
     Dates: start: 20020809, end: 20030919
  2. PEPCID RPD [Suspect]
     Route: 048
     Dates: start: 20020703, end: 20021119
  3. BONZOL [Suspect]
     Route: 048
     Dates: start: 20020727, end: 20021214
  4. GASMOTIN [Suspect]
     Route: 048
     Dates: start: 20020703, end: 20021214
  5. MUCOSTA [Concomitant]
     Route: 048
     Dates: start: 20020902, end: 20021213
  6. SENNOSIDES [Concomitant]
     Route: 048
     Dates: start: 20020703, end: 20040109

REACTIONS (1)
  - HEPATITIS [None]
